FAERS Safety Report 16370491 (Version 1)
Quarter: 2019Q2

REPORT INFORMATION
  Report Type: Spontaneous
  Country: TN (occurrence: TN)
  Receive Date: 20190530
  Receipt Date: 20190530
  Transmission Date: 20190711
  Serious: Yes (Hospitalization, Other)
  Sender: FDA-Public Use
  Company Number: TN-BION-008050

PATIENT
  Age: 19 Year
  Sex: Female
  Weight: 38 kg

DRUGS (3)
  1. CEFIXIME/CEFIXIME TRIHYDRATE [Suspect]
     Active Substance: CEFIXIME
     Indication: PNEUMONIA
  2. AMOXICILLIN. [Suspect]
     Active Substance: AMOXICILLIN
     Indication: PNEUMONIA
  3. LOPERAMIDE HYDROCHLORIDE. [Suspect]
     Active Substance: LOPERAMIDE HYDROCHLORIDE
     Indication: DIARRHOEA

REACTIONS (1)
  - Pseudomembranous colitis [Recovering/Resolving]
